FAERS Safety Report 5454937-5 (Version None)
Quarter: 2007Q3

REPORT INFORMATION
  Report Type: 
  Country: None (occurrence: None)
  Receive Date: 20070917
  Receipt Date: 20070905
  Transmission Date: 20080115
  Serious: Yes (Death, Hospitalization)
  Sender: FDA-Public Use
  Company Number: DE-PFIZER INC-2006062300

PATIENT
  Sex: Male
  Weight: 61.8 kg

DRUGS (3)
  1. SU-011,248 [Suspect]
     Indication: METASTATIC RENAL CELL CARCINOMA
     Route: 048
     Dates: start: 20060202, end: 20060413
  2. THYRONAJOD [Concomitant]
     Route: 048
     Dates: start: 20040101, end: 20060517
  3. TAMSULOSIN HCL [Concomitant]
     Indication: BENIGN PROSTATIC HYPERPLASIA
     Route: 048
     Dates: start: 20051201, end: 20060517

REACTIONS (2)
  - DYSPNOEA [None]
  - PLEURAL EFFUSION [None]
